FAERS Safety Report 14872209 (Version 1)
Quarter: 2018Q2

REPORT INFORMATION
  Report Type: Spontaneous
  Country: NL (occurrence: NL)
  Receive Date: 20180509
  Receipt Date: 20180509
  Transmission Date: 20180711
  Serious: Yes (Hospitalization)
  Sender: FDA-Public Use
  Company Number: NL-SA-2018SA119477

PATIENT
  Sex: Male

DRUGS (2)
  1. MYOZYME [Suspect]
     Active Substance: ALGLUCOSIDASE ALFA
     Indication: GAUCHER^S DISEASE TYPE III
     Route: 041
     Dates: start: 20110415
  2. MYOZYME [Suspect]
     Active Substance: ALGLUCOSIDASE ALFA
     Indication: GLYCOGEN STORAGE DISEASE TYPE II
     Route: 041
     Dates: start: 20110415

REACTIONS (3)
  - Superior vena cava syndrome [Recovering/Resolving]
  - Vena cava thrombosis [Recovering/Resolving]
  - Swelling face [Recovered/Resolved]

NARRATIVE: CASE EVENT DATE: 20180320
